FAERS Safety Report 5052275-6 (Version None)
Quarter: 2006Q2

REPORT INFORMATION
  Report Type: 
  Country: None (occurrence: None)
  Receive Date: 20060614
  Receipt Date: 20060223
  Transmission Date: 20061013
  Serious: Yes (Other)
  Sender: FDA-Public Use
  Company Number: 437959

PATIENT
  Age: 69 Year
  Sex: Female

DRUGS (5)
  1. BONIVA [Suspect]
     Indication: OSTEOPOROSIS
     Dosage: 1 PER MONTH ORAL
     Route: 048
  2. TRAMADOL HCL [Concomitant]
  3. VITAMINS NOS (MULTIVITAMIN NOS) [Concomitant]
  4. PREVACID [Concomitant]
  5. PRILOSEC [Concomitant]

REACTIONS (3)
  - DYSGEUSIA [None]
  - GASTROOESOPHAGEAL REFLUX DISEASE [None]
  - NAUSEA [None]
